FAERS Safety Report 12284293 (Version 2)
Quarter: 2016Q3

REPORT INFORMATION
  Report Type: Spontaneous
  Country: US (occurrence: US)
  Receive Date: 20160420
  Receipt Date: 20160727
  Transmission Date: 20161109
  Serious: No
  Sender: FDA-Public Use
  Company Number: US-ASTRAZENECA-2016SE38658

PATIENT
  Age: 26809 Day
  Sex: Female
  Weight: 68 kg

DRUGS (3)
  1. SYMBICORT [Suspect]
     Active Substance: BUDESONIDE\FORMOTEROL FUMARATE DIHYDRATE
     Indication: PRODUCT USED FOR UNKNOWN INDICATION
     Dosage: 160/4.5 2 PUFFS TWICE DAILY 120 INHALATIONS
     Route: 055
     Dates: start: 201602
  2. METOPROLOL TARTRATE. [Concomitant]
     Active Substance: METOPROLOL TARTRATE
     Indication: BLOOD PRESSURE ABNORMAL
     Route: 048
     Dates: start: 201602
  3. ALBUTEROL PROAIR [Concomitant]
     Dosage: 108 MCG/A EVERY 4 HOURS AS NEEDED
     Dates: start: 2014

REACTIONS (5)
  - Injury associated with device [Unknown]
  - Intentional product misuse [Unknown]
  - Influenza [Recovered/Resolved]
  - Underdose [Unknown]
  - Device malfunction [Unknown]

NARRATIVE: CASE EVENT DATE: 20160404
